FAERS Safety Report 7705948-8 (Version None)
Quarter: 2011Q3

REPORT INFORMATION
  Report Type: 
  Country: None (occurrence: None)
  Receive Date: 20110824
  Receipt Date: 20110811
  Transmission Date: 20111222
  Serious: Yes (Other)
  Sender: FDA-Public Use
  Company Number: PHHY2011US61964

PATIENT
  Sex: Male
  Weight: 68.92 kg

DRUGS (2)
  1. EXJADE [Suspect]
     Indication: SICKLE CELL ANAEMIA
     Dosage: 1000 MG, DAILY
     Route: 048
     Dates: start: 20080125, end: 20110811
  2. EXJADE [Suspect]
     Indication: IRON OVERLOAD

REACTIONS (2)
  - THROMBOSIS [None]
  - PULMONARY EMBOLISM [None]
